FAERS Safety Report 5618644-8 (Version None)
Quarter: 2008Q1

REPORT INFORMATION
  Report Type: 
  Country: None (occurrence: None)
  Receive Date: 20080205
  Receipt Date: 20080205
  Transmission Date: 20080703
  Serious: Yes (Life-Threatening)
  Sender: FDA-Public Use
  Company Number: None

PATIENT
  Age: 58 Year
  Sex: Female
  Weight: 88 kg

DRUGS (2)
  1. ERYTHROMYCIN [Suspect]
     Indication: CELLULITIS
     Dates: start: 20020825, end: 20020908
  2. ROXITHROMYCIN [Suspect]
     Indication: CELLULITIS

REACTIONS (1)
  - CONGESTIVE CARDIOMYOPATHY [None]
